FAERS Safety Report 15356888 (Version 1)
Quarter: 2018Q3

REPORT INFORMATION
  Report Type: Report from Study
  Country: JP (occurrence: JP)
  Receive Date: 20180906
  Receipt Date: 20180906
  Transmission Date: 20181010
  Serious: Yes (Hospitalization, Other)
  Sender: FDA-Public Use
  Company Number: JP-ASTRAZENECA-2016SF12972

PATIENT
  Age: 77 Year
  Sex: Male
  Weight: 87 kg

DRUGS (1)
  1. TAGRISSO [Suspect]
     Active Substance: OSIMERTINIB
     Indication: NON-SMALL CELL LUNG CANCER
     Route: 048
     Dates: start: 20160926

REACTIONS (4)
  - Platelet count decreased [Not Recovered/Not Resolved]
  - Deep vein thrombosis [Recovering/Resolving]
  - Pulmonary embolism [Not Recovered/Not Resolved]
  - Pulmonary infarction [Not Recovered/Not Resolved]

NARRATIVE: CASE EVENT DATE: 20161003
